FAERS Safety Report 10128494 (Version 1)
Quarter: 2014Q2

REPORT INFORMATION
  Report Type: Spontaneous
  Country: US (occurrence: None)
  Receive Date: 20140424
  Receipt Date: 20140424
  Transmission Date: 20141212
  Serious: No
  Sender: FDA-Public Use
  Company Number: 1713747-2014-99951

PATIENT
  Sex: Female

DRUGS (4)
  1. FRESENIUS DELFLEX DEXTROSE SOLUTION [Suspect]
     Indication: PERITONEAL DIALYSIS
  2. FRESENIUS DELFLEX DEXTROSE SOLUTION [Suspect]
  3. LIBERTY CYCLER [Concomitant]
  4. LIBERTY CYCLER CASSETTE [Concomitant]

REACTIONS (1)
  - Peritonitis [None]
